FAERS Safety Report 25050408 (Version 1)
Quarter: 2025Q1

REPORT INFORMATION
  Report Type: Spontaneous
  Country: US (occurrence: None)
  Receive Date: 20250306
  Receipt Date: 20250306
  Transmission Date: 20250409
  Serious: No
  Sender: FDA-CTU
  Company Number: None

PATIENT
  Age: 91 Year
  Sex: Female

DRUGS (1)
  1. METHOCARBAMOL [Suspect]
     Active Substance: METHOCARBAMOL
     Indication: Muscle spasms
     Dosage: 500 MG 3 TIMES A DAY ORAL ?
     Route: 048
     Dates: start: 20240617, end: 20240620

REACTIONS (1)
  - Delirium [None]

NARRATIVE: CASE EVENT DATE: 20240619
